FAERS Safety Report 8993014 (Version 1)
Quarter: 2013Q1

REPORT INFORMATION
  Report Type: Spontaneous
  Country: US (occurrence: US)
  Receive Date: 20130102
  Receipt Date: 20130102
  Transmission Date: 20140127
  Serious: Yes (Hospitalization)
  Sender: FDA-Public Use
  Company Number: US-JNJFOC-20121211654

PATIENT
  Age: 64 Year
  Sex: Female
  Weight: 58 kg

DRUGS (15)
  1. DOXORUBICIN HYDROCHLORIDE (DOXIL) [Suspect]
     Indication: OVARIAN CANCER
     Dosage: EVERY 28 DAYS
     Route: 042
     Dates: start: 20091130, end: 20100614
  2. VINTAFOLIDE [Suspect]
     Indication: OVARIAN CANCER
     Dosage: EVERY OTHER WEEK
     Route: 042
     Dates: start: 20091130, end: 20100702
  3. TC-99M EC-20 [Suspect]
     Indication: SINGLE PHOTON EMISSION COMPUTERISED TOMOGRAM
     Dosage: 2.45 MCI, EVERY OTHER WEEK
     Route: 042
     Dates: start: 20091123, end: 20091123
  4. FENTANYL [Concomitant]
     Route: 065
  5. SENNA S [Concomitant]
     Route: 065
  6. OMEPRAZOLE [Concomitant]
     Route: 065
  7. PROZAC [Concomitant]
     Route: 065
  8. ATIVAN [Concomitant]
     Route: 065
  9. OXYCODONE [Concomitant]
     Route: 065
  10. DILAUDID [Concomitant]
     Route: 065
  11. OXYCONTIN [Concomitant]
     Route: 065
  12. AMBIEN [Concomitant]
     Route: 065
  13. DEXAMETHASONE [Concomitant]
     Route: 065
  14. ONDANSETRON [Concomitant]
     Route: 065
  15. MARINOL [Concomitant]
     Route: 065

REACTIONS (5)
  - Metastases to central nervous system [Unknown]
  - Pneumatosis [Unknown]
  - Nausea [Recovered/Resolved with Sequelae]
  - Abdominal pain [Recovered/Resolved with Sequelae]
  - Dizziness [Recovered/Resolved with Sequelae]
